FAERS Safety Report 7797860-3 (Version None)
Quarter: 2011Q4

REPORT INFORMATION
  Report Type: 
  Country: None (occurrence: None)
  Receive Date: 20111004
  Receipt Date: 20111004
  Transmission Date: 20120403
  Serious: No
  Sender: FDA-Public Use
  Company Number: None

PATIENT
  Age: 59 Year
  Sex: Male
  Weight: 82.1 kg

DRUGS (1)
  1. NAPROXEN [Suspect]
     Dosage: PO
     Route: 048

REACTIONS (1)
  - DUODENAL ULCER [None]
